FAERS Safety Report 25440461 (Version 1)
Quarter: 2025Q2

REPORT INFORMATION
  Report Type: Spontaneous
  Country: US (occurrence: None)
  Receive Date: 20250616
  Receipt Date: 20250616
  Transmission Date: 20250717
  Serious: Yes (Other)
  Sender: FDA-CTU
  Company Number: None

PATIENT
  Age: 6 Week
  Sex: Female

DRUGS (3)
  1. PROPRANOLOL HYDROCHLORIDE [Suspect]
     Active Substance: PROPRANOLOL HYDROCHLORIDE
     Indication: Hypertension
     Dates: start: 20250512, end: 20250616
  2. Albutoral [Concomitant]
  3. TYLENOL [Concomitant]
     Active Substance: ACETAMINOPHEN

REACTIONS (9)
  - Dyspnoea [None]
  - Irregular breathing [None]
  - Nightmare [None]
  - Pain in extremity [None]
  - Gait disturbance [None]
  - Dysmenorrhoea [None]
  - Nausea [None]
  - Constipation [None]
  - Abdominal pain [None]

NARRATIVE: CASE EVENT DATE: 20250603
